FAERS Safety Report 5072846-0 (Version None)
Quarter: 2006Q3

REPORT INFORMATION
  Report Type: 
  Country: None (occurrence: None)
  Receive Date: 20060807
  Receipt Date: 20060612
  Transmission Date: 20061208
  Serious: Yes (Other)
  Sender: FDA-Public Use
  Company Number: NL-NOVOPROD-254181

PATIENT
  Age: 55 Year
  Sex: Female
  Weight: 100 kg

DRUGS (7)
  1. LEVEMIR [Suspect]
     Indication: INSULIN-REQUIRING TYPE II DIABETES MELLITUS
     Dosage: 36 U, UNK
     Route: 058
     Dates: start: 20051024
  2. NOVORAPID PENFILL [Concomitant]
     Indication: INSULIN-REQUIRING TYPE II DIABETES MELLITUS
     Dosage: 62 U, QD
  3. SIMVASTATIN [Concomitant]
     Dosage: 20 MG, QD
  4. LOSARTAN POSTASSIUM [Concomitant]
     Dosage: 1 X 50/12 MG
  5. AMLODIPINE [Concomitant]
     Dosage: 5 MG
  6. METOPROLOL [Concomitant]
     Dosage: STARTED BEFORE 2004
  7. METOPROLOL [Concomitant]
     Dosage: INCREASED DOSE 1 X 100 MG

REACTIONS (1)
  - PALPITATIONS [None]
